FAERS Safety Report 23847807 (Version 2)
Quarter: 2024Q2

REPORT INFORMATION
  Report Type: Report from Study
  Country: US (occurrence: US)
  Receive Date: 20240513
  Receipt Date: 20240522
  Transmission Date: 20240716
  Serious: Yes (Hospitalization, Other)
  Sender: FDA-Public Use
  Company Number: US-GILEAD-2024-0671707

PATIENT
  Sex: Female

DRUGS (2)
  1. AMBRISENTAN [Suspect]
     Active Substance: AMBRISENTAN
     Indication: Pulmonary hypertension
     Dosage: 10 MG, QD
     Route: 065
     Dates: start: 20220328
  2. VELETRI [Concomitant]
     Active Substance: EPOPROSTENOL

REACTIONS (3)
  - Pneumonia [Unknown]
  - Dyspnoea [Unknown]
  - Pneumonia bacterial [Unknown]
